FAERS Safety Report 17153356 (Version 2)
Quarter: 2020Q1

REPORT INFORMATION
  Report Type: Report from Study
  Country: SE (occurrence: SE)
  Receive Date: 20191213
  Receipt Date: 20200106
  Transmission Date: 20200409
  Serious: Yes (Other)
  Sender: FDA-Public Use
  Company Number: SE-BRISTOL-MYERS SQUIBB COMPANY-BMS-2019-118276

PATIENT
  Age: 52 Year
  Sex: Female

DRUGS (2)
  1. NIVOLUMAB [Suspect]
     Active Substance: NIVOLUMAB
     Indication: RENAL CELL CARCINOMA
     Dosage: UNK
     Route: 065
  2. YERVOY [Suspect]
     Active Substance: IPILIMUMAB
     Indication: RENAL CELL CARCINOMA
     Dosage: UNK
     Route: 065

REACTIONS (29)
  - Diarrhoea [Unknown]
  - Hypoaesthesia [Unknown]
  - Muscle spasms [Unknown]
  - Balance disorder [Unknown]
  - Eye pain [Unknown]
  - Adverse event [Unknown]
  - Ligament pain [Unknown]
  - Haematochezia [Unknown]
  - Ocular hyperaemia [Unknown]
  - Mucous stools [Unknown]
  - Muscle swelling [Unknown]
  - Ligament disorder [Unknown]
  - Dyschezia [Unknown]
  - Visual impairment [Unknown]
  - Pruritus [Unknown]
  - Myalgia [Unknown]
  - Gait disturbance [Unknown]
  - Decreased appetite [Unknown]
  - Nausea [Unknown]
  - Cough [Unknown]
  - Blister [Unknown]
  - Chest pain [Unknown]
  - Headache [Unknown]
  - Vision blurred [Unknown]
  - Dyspnoea [Unknown]
  - Vomiting [Unknown]
  - Fatigue [Unknown]
  - Abnormal faeces [Unknown]
  - Rash [Unknown]

NARRATIVE: CASE EVENT DATE: 20191207
